FAERS Safety Report 19475757 (Version 1)
Quarter: 2021Q2

REPORT INFORMATION
  Report Type: Spontaneous
  Country: BR (occurrence: BR)
  Receive Date: 20210630
  Receipt Date: 20210630
  Transmission Date: 20210717
  Serious: Yes (Other)
  Sender: FDA-Public Use
  Company Number: BR-CIPLA LTD.-2021BR04417

PATIENT

DRUGS (3)
  1. ATAZANAVIR. [Suspect]
     Active Substance: ATAZANAVIR
     Indication: ANTIRETROVIRAL THERAPY
     Dosage: AT A TOTAL DAILY DOSE OF 300 IN THE 21ST WEEK OF SECOND TRIMESTER (COURSE 1)
     Route: 048
  2. RITONAVIR. [Suspect]
     Active Substance: RITONAVIR
     Indication: ANTIRETROVIRAL THERAPY
     Dosage: AT A TOTAL DAILY DOSE OF 100 IN THE 21ST WEEK OF SECOND TRIMESTER (COURSE 1)
     Route: 048
  3. LAMIVUDINE/TENOFOVIR [Suspect]
     Active Substance: LAMIVUDINE\TENOFOVIR
     Indication: ANTIRETROVIRAL THERAPY
     Dosage: AT A TOTAL DAILY DOSE OF 600 IN THE 21ST WEEK OF SECOND TRIMESTER (COURSE 1)
     Route: 048

REACTIONS (2)
  - Exposure during pregnancy [Unknown]
  - Premature delivery [Unknown]
